FAERS Safety Report 18366055 (Version 2)
Quarter: 2020Q4

REPORT INFORMATION
  Report Type: Spontaneous
  Country: US (occurrence: US)
  Receive Date: 20201009
  Receipt Date: 20201030
  Transmission Date: 20210114
  Serious: No
  Sender: FDA-Public Use
  Company Number: US-BIOGEN-2020BI00932659

PATIENT
  Sex: Female

DRUGS (1)
  1. TYSABRI [Suspect]
     Active Substance: NATALIZUMAB
     Indication: MULTIPLE SCLEROSIS
     Route: 065
     Dates: start: 20200618, end: 20200813

REACTIONS (8)
  - Tremor [Recovered/Resolved]
  - Palpitations [Recovered/Resolved]
  - Respiratory rate increased [Recovered/Resolved]
  - Hypersensitivity [Unknown]
  - Injection site pain [Unknown]
  - Antibody test positive [Unknown]
  - Haemorrhage [Recovered/Resolved]
  - Chills [Recovered/Resolved]
